FAERS Safety Report 10956322 (Version 1)
Quarter: 2015Q1

REPORT INFORMATION
  Report Type: Spontaneous
  Country: DK (occurrence: DK)
  Receive Date: 20150326
  Receipt Date: 20150326
  Transmission Date: 20150721
  Serious: Yes (Hospitalization)
  Sender: FDA-Public Use
  Company Number: DK-RANBAXY-2015R1-94217

PATIENT
  Age: 18 Year
  Sex: Female

DRUGS (4)
  1. TOPIRAMATE. [Suspect]
     Active Substance: TOPIRAMATE
     Indication: NEURONAL CEROID LIPOFUSCINOSIS
     Dosage: 350 MG/KG, DAILY
     Route: 065
  2. OXCARBAZEPINE. [Suspect]
     Active Substance: OXCARBAZEPINE
     Indication: NEURONAL CEROID LIPOFUSCINOSIS
     Dosage: 2100 MG/KG, DAILY
     Route: 065
  3. VALPROIC ACID. [Suspect]
     Active Substance: VALPROIC ACID
     Indication: SEIZURE
     Dosage: 1000 MG/24 H; 16 MG/KG/24 H
     Route: 065
  4. VALPROIC ACID. [Suspect]
     Active Substance: VALPROIC ACID
     Indication: SEIZURE
     Dosage: 500 MG, DAILY
     Route: 065

REACTIONS (2)
  - Hyperammonaemia [Recovered/Resolved]
  - Hyperammonaemic encephalopathy [Recovered/Resolved]
